FAERS Safety Report 17362506 (Version 1)
Quarter: 2020Q1

REPORT INFORMATION
  Report Type: Spontaneous
  Country: FR (occurrence: FR)
  Receive Date: 20200203
  Receipt Date: 20200203
  Transmission Date: 20200409
  Serious: Yes (Hospitalization, Other)
  Sender: FDA-Public Use
  Company Number: FR-BIOVITRUM-2020FR0471

PATIENT
  Age: 15 Year

DRUGS (3)
  1. ORFADIN [Suspect]
     Active Substance: NITISINONE
  2. ORFADIN [Suspect]
     Active Substance: NITISINONE
     Indication: TYROSINAEMIA
  3. ORFADIN [Suspect]
     Active Substance: NITISINONE
     Dosage: LESS THAN 30 MICROMOL/L

REACTIONS (11)
  - Vomiting [Unknown]
  - Abdominal distension [Unknown]
  - Product dose omission [Recovered/Resolved]
  - Seizure [Unknown]
  - Amino acid level increased [Unknown]
  - Respiratory depression [Unknown]
  - Fatigue [Unknown]
  - Pain [Unknown]
  - Abdominal pain [Unknown]
  - Hypertension [Unknown]
  - Hyporeflexia [Unknown]

NARRATIVE: CASE EVENT DATE: 2018
